FAERS Safety Report 8184270-2 (Version None)
Quarter: 2012Q1

REPORT INFORMATION
  Report Type: 
  Country: None (occurrence: None)
  Receive Date: 20120305
  Receipt Date: 20120227
  Transmission Date: 20120608
  Serious: Yes (Hospitalization, Other)
  Sender: FDA-Public Use
  Company Number: GB-ABBOTT-12P-167-0904657-00

PATIENT
  Sex: Male

DRUGS (7)
  1. SERTRALINE HYDROCHLORIDE [Concomitant]
     Indication: DEPRESSION
     Route: 048
  2. SPIRONOLACTONE [Concomitant]
     Indication: HEPATIC STEATOSIS
     Route: 048
     Dates: start: 20120101
  3. FUROSEMIDE [Concomitant]
     Indication: HEPATIC STEATOSIS
     Route: 048
     Dates: start: 20120101
  4. RANITIDINE [Concomitant]
     Indication: DYSPEPSIA
     Dates: start: 20050301
  5. HUMULIN M3 [Concomitant]
     Indication: DIABETES MELLITUS
     Dosage: 100 U/ML
     Route: 058
  6. PHENOXYMETHYLPENICILLIN [Concomitant]
     Indication: SPLENECTOMY
     Route: 048
     Dates: start: 20110501
  7. CREON [Suspect]
     Indication: PANCREATITIS CHRONIC
     Dosage: 3 IN 1 D, 1 WITH EACH MEAL
     Route: 048

REACTIONS (3)
  - PANCREATITIS ACUTE [None]
  - PORTAL VEIN THROMBOSIS [None]
  - DYSPHAGIA [None]
